FAERS Safety Report 12364473 (Version 1)
Quarter: 2016Q2

REPORT INFORMATION
  Report Type: Spontaneous
  Country: US (occurrence: None)
  Receive Date: 20160512
  Receipt Date: 20160512
  Transmission Date: 20160815
  Serious: Yes (Hospitalization)
  Sender: FDA-Public Use
  Company Number: None

PATIENT
  Age: 53 Year
  Sex: Male
  Weight: 70.2 kg

DRUGS (1)
  1. CISPLATIN. [Suspect]
     Active Substance: CISPLATIN
     Dates: end: 20160420

REACTIONS (4)
  - Haemoglobin decreased [None]
  - Platelet count abnormal [None]
  - White blood cell count abnormal [None]
  - Febrile neutropenia [None]

NARRATIVE: CASE EVENT DATE: 20160429
